FAERS Safety Report 8776773 (Version 2)
Quarter: 2014Q1

REPORT INFORMATION
  Report Type: Spontaneous
  Country: HU (occurrence: HU)
  Receive Date: 20120911
  Receipt Date: 20140120
  Transmission Date: 20141002
  Serious: Yes (Hospitalization, Disabling, Other)
  Sender: FDA-Public Use
  Company Number: HU-PFIZER INC-2012219849

PATIENT
  Age: 72 Year
  Sex: Female

DRUGS (7)
  1. SUTENT [Suspect]
     Indication: PANCREATIC NEUROENDOCRINE TUMOUR
     Dosage: 37.5 MG, DAILY
     Dates: start: 20111025
  2. SUTENT [Suspect]
     Dosage: 25 MG, DAILY
     Dates: start: 20111121, end: 20120227
  3. SUTENT [Suspect]
     Dosage: 12.5 MG, DAILY
     Dates: start: 20120406, end: 20120602
  4. PANGROL ^BERLIN-CHEMIE^ [Concomitant]
     Indication: PANCREATECTOMY
     Dosage: 25000 IU, 3X/DAY
     Dates: start: 2007, end: 2009
  5. VITAMIN D3 [Concomitant]
     Indication: PANCREATECTOMY
     Dosage: 3000 IU, 1X/DAY
     Dates: start: 2010
  6. ACTRAPID [Concomitant]
     Indication: PANCREATECTOMY
     Dosage: 6 IU, 3X/DAY
  7. INSULATARD [Concomitant]
     Indication: PANCREATECTOMY
     Dosage: 6 IU, 1X/DAY

REACTIONS (15)
  - Myelodysplastic syndrome [Not Recovered/Not Resolved]
  - Anaemia [Not Recovered/Not Resolved]
  - Mucosal inflammation [Recovered/Resolved]
  - Mucosal haemorrhage [Recovered/Resolved]
  - Vaginal haemorrhage [Recovered/Resolved]
  - Haemorrhage subcutaneous [Recovered/Resolved]
  - Anaemia macrocytic [Unknown]
  - Gastritis atrophic [Unknown]
  - Diarrhoea [Recovered/Resolved]
  - Dysgeusia [Not Recovered/Not Resolved]
  - Dysphagia [Recovered/Resolved]
  - Disease progression [Unknown]
  - Pancreatic neuroendocrine tumour [Unknown]
  - Renal cyst [Unknown]
  - Hiatus hernia [Unknown]
